FAERS Safety Report 7630553-1 (Version None)
Quarter: 2011Q3

REPORT INFORMATION
  Report Type: 
  Country: None (occurrence: None)
  Receive Date: 20110722
  Receipt Date: 20100111
  Transmission Date: 20111222
  Serious: Yes (Other)
  Sender: FDA-Public Use
  Company Number: US-BAYER-200941130NA

PATIENT
  Age: 33 Year
  Sex: Female
  Weight: 58.8 kg

DRUGS (31)
  1. OMNISCAN [Suspect]
     Indication: NUCLEAR MAGNETIC RESONANCE IMAGING
  2. OPTIMARK [Suspect]
     Indication: NUCLEAR MAGNETIC RESONANCE IMAGING
  3. PREDNISONE [Concomitant]
  4. VENOFER [Concomitant]
  5. ACYCLOVIR [Concomitant]
  6. ZYVOX [Concomitant]
  7. PROHANCE [Suspect]
     Indication: NUCLEAR MAGNETIC RESONANCE IMAGING
  8. GADOLINIUM IN UNSPECIFIED DRUG [Suspect]
     Dosage: UNK, ONCE
     Dates: start: 20021101, end: 20021101
  9. RAPAMUNE [Concomitant]
  10. LASIX [Concomitant]
  11. EPOGEN [Concomitant]
  12. PAXIL [Concomitant]
  13. HYDROXYZINE HCL [Concomitant]
  14. GADOLINIUM IN UNSPECIFIED DRUG [Suspect]
     Indication: NUCLEAR MAGNETIC RESONANCE IMAGING
     Dosage: IN OR AROUND AUG-2002 THROUGH MAR-2003
     Dates: start: 20020826, end: 20020826
  15. GADOLINIUM IN UNSPECIFIED DRUG [Suspect]
     Dosage: UNK, ONCE
     Dates: start: 20021021, end: 20021021
  16. LOPRESSOR [Concomitant]
  17. FERROUS SULFATE TAB [Concomitant]
  18. RENAGEL [Concomitant]
  19. LIPITOR [Concomitant]
  20. CELLCEPT [Concomitant]
  21. ATENOLOL [Concomitant]
  22. MAGNEVIST [Suspect]
     Indication: NUCLEAR MAGNETIC RESONANCE IMAGING
     Dosage: UNK
  23. GADOLINIUM IN UNSPECIFIED DRUG [Suspect]
     Indication: ANGIOGRAM
     Dosage: IN OR AROUND AUG-2002 THROUGH MAR-2003
     Dates: start: 20030301, end: 20030301
  24. PROGRAF [Concomitant]
  25. NIFEDIPINE [Concomitant]
  26. CALCITRIOL [Concomitant]
  27. CELEBREX [Concomitant]
  28. CYTOVENE [Concomitant]
  29. MYFORTIC [Concomitant]
  30. VALCYTE [Concomitant]
  31. MULTIHANCE [Suspect]
     Indication: NUCLEAR MAGNETIC RESONANCE IMAGING

REACTIONS (29)
  - RASH MACULAR [None]
  - MUSCULAR WEAKNESS [None]
  - DEFORMITY [None]
  - RASH PAPULAR [None]
  - LIGAMENT PAIN [None]
  - SKIN LESION [None]
  - SKIN TIGHTNESS [None]
  - PEAU D'ORANGE [None]
  - JOINT RANGE OF MOTION DECREASED [None]
  - OEDEMA PERIPHERAL [None]
  - ARTHRALGIA [None]
  - ANHEDONIA [None]
  - NEPHROGENIC SYSTEMIC FIBROSIS [None]
  - PAIN OF SKIN [None]
  - PRURITUS [None]
  - BONE PAIN [None]
  - SCAR [None]
  - PAIN [None]
  - SKIN INDURATION [None]
  - GENERAL PHYSICAL HEALTH DETERIORATION [None]
  - SKIN SWELLING [None]
  - SKIN HYPERTROPHY [None]
  - BURNING SENSATION [None]
  - HYPOAESTHESIA [None]
  - ANXIETY [None]
  - BLISTER [None]
  - SKIN DISCOLOURATION [None]
  - LIGAMENT DISORDER [None]
  - MUSCULOSKELETAL STIFFNESS [None]
